FAERS Safety Report 24821118 (Version 1)
Quarter: 2025Q1

REPORT INFORMATION
  Report Type: Spontaneous
  Country: US (occurrence: US)
  Receive Date: 20250108
  Receipt Date: 20250108
  Transmission Date: 20250408
  Serious: No
  Sender: SANOFI AVENTIS
  Company Number: US-SA-2025SA004277

PATIENT
  Age: 65 Year
  Sex: Female

DRUGS (3)
  1. DUPIXENT [Suspect]
     Active Substance: DUPILUMAB
     Indication: Dermatitis atopic
     Dosage: 300 MG QOW
     Route: 058
     Dates: start: 20241120
  2. BUDESONIDE [Concomitant]
     Active Substance: BUDESONIDE
  3. SYMBICORT [Concomitant]
     Active Substance: BUDESONIDE\FORMOTEROL FUMARATE DIHYDRATE

REACTIONS (1)
  - Sleep disorder due to a general medical condition [Not Recovered/Not Resolved]

NARRATIVE: CASE EVENT DATE: 20241201
